FAERS Safety Report 22259353 (Version 1)
Quarter: 2023Q2

REPORT INFORMATION
  Report Type: Spontaneous
  Country: DE (occurrence: DE)
  Receive Date: 20230427
  Receipt Date: 20230427
  Transmission Date: 20230722
  Serious: Yes (Other)
  Sender: FDA-Public Use
  Company Number: DE-009507513-2304DEU008211

PATIENT
  Sex: Female

DRUGS (1)
  1. PEMBROLIZUMAB [Suspect]
     Active Substance: PEMBROLIZUMAB
     Indication: Product used for unknown indication
     Dosage: UNK
     Route: 065
     Dates: start: 201701

REACTIONS (5)
  - Autoimmune thyroiditis [Unknown]
  - Chemotherapy [Unknown]
  - Hypophysitis [Unknown]
  - Secondary adrenocortical insufficiency [Unknown]
  - Hypopituitarism [Unknown]
